FAERS Safety Report 11050541 (Version 1)
Quarter: 2015Q2

REPORT INFORMATION
  Report Type: Spontaneous
  Country: DK (occurrence: DK)
  Receive Date: 20150421
  Receipt Date: 20150421
  Transmission Date: 20150821
  Serious: Yes (Hospitalization)
  Sender: FDA-Public Use
  Company Number: DK-EMCURE-000804

PATIENT
  Age: 38 Year
  Sex: Male

DRUGS (5)
  1. ALKERAN [Suspect]
     Active Substance: MELPHALAN
     Indication: MULTIPLE SCLEROSIS
     Dosage: BEAM PROTOCOL
     Dates: start: 20121203
  2. BICNU [Suspect]
     Active Substance: CARMUSTINE
     Indication: MULTIPLE SCLEROSIS
     Dosage: BEAM PROTOCOL
     Dates: start: 20121129
  3. ETOPOSID EBEWE [Suspect]
     Active Substance: ETOPOSIDE
     Indication: MULTIPLE SCLEROSIS
     Dosage: BEAM PROTOCOL
     Route: 042
     Dates: start: 20121130
  4. ARABINE [Suspect]
     Active Substance: CYTARABINE
     Indication: MULTIPLE SCLEROSIS
     Dosage: BEAM PROTOCOL
     Route: 042
     Dates: start: 20121130
  5. SENDOXAN [Concomitant]
     Active Substance: CYCLOPHOSPHAMIDE
     Indication: MULTIPLE SCLEROSIS
     Dates: start: 20121019

REACTIONS (9)
  - Osteoporosis [Unknown]
  - Cognitive disorder [Unknown]
  - Immune system disorder [Recovered/Resolved]
  - Confusional state [Unknown]
  - Gastric disorder [Recovered/Resolved]
  - Multiple sclerosis relapse [None]
  - Infection [Recovered/Resolved]
  - General physical health deterioration [Unknown]
  - Slow speech [Unknown]

NARRATIVE: CASE EVENT DATE: 201301
